FAERS Safety Report 8122210-2 (Version None)
Quarter: 2012Q1

REPORT INFORMATION
  Report Type: 
  Country: None (occurrence: None)
  Receive Date: 20120208
  Receipt Date: 20120130
  Transmission Date: 20120608
  Serious: Yes (Hospitalization)
  Sender: FDA-Public Use
  Company Number: US-BAYER-2011-094727

PATIENT
  Age: 33 Year
  Sex: Female
  Weight: 150.57 kg

DRUGS (12)
  1. COUMADIN [Concomitant]
  2. ALBUTEROL [Concomitant]
  3. MOTRIN [Concomitant]
  4. PEPCID [Concomitant]
  5. HYDROCHLOROTHIAZIDE [Concomitant]
  6. AMPHETAMINE AND DEXTROAMPHETAMINE SALTS [Concomitant]
  7. ADIPEX [Concomitant]
  8. TORADOL [Concomitant]
     Dosage: 60 MG, UNK
     Route: 030
     Dates: start: 20090903
  9. YAZ [Suspect]
     Dosage: UNK
     Dates: start: 20070101, end: 20091006
  10. LOVENOX [Concomitant]
  11. NORVASC [Concomitant]
  12. ADVAIR DISKUS 100/50 [Concomitant]

REACTIONS (6)
  - DEEP VEIN THROMBOSIS [None]
  - PAIN [None]
  - INJURY [None]
  - PULMONARY EMBOLISM [None]
  - DYSPNOEA [None]
  - CHEST PAIN [None]
